FAERS Safety Report 6273949-5 (Version None)
Quarter: 2009Q3

REPORT INFORMATION
  Report Type: 
  Country: None (occurrence: None)
  Receive Date: 20090720
  Receipt Date: 20090713
  Transmission Date: 20100115
  Serious: Yes (Hospitalization)
  Sender: FDA-Public Use
  Company Number: ES-MERCK-0907ESP00016

PATIENT
  Age: 72 Year
  Sex: Male

DRUGS (2)
  1. PROSCAR [Suspect]
     Indication: BENIGN PROSTATIC HYPERPLASIA
     Route: 048
     Dates: start: 20071201
  2. MEBEVERINE HYDROCHLORIDE [Suspect]
     Indication: DIVERTICULITIS
     Route: 048
     Dates: start: 20071201, end: 20090401

REACTIONS (2)
  - ATRIAL FIBRILLATION [None]
  - DEEP VEIN THROMBOSIS [None]
